FAERS Safety Report 5715009-5 (Version None)
Quarter: 2008Q2

REPORT INFORMATION
  Report Type: 
  Country: None (occurrence: None)
  Receive Date: 20080423
  Receipt Date: 20080410
  Transmission Date: 20081010
  Serious: Yes (Other)
  Sender: FDA-Public Use
  Company Number: PHHY2008GT05379

PATIENT
  Age: 54 Year
  Sex: Female

DRUGS (2)
  1. DIOVAN [Suspect]
     Indication: HYPERTENSION
     Dosage: 160 MG, QD
     Route: 048
     Dates: start: 20070927
  2. METFORMIN HCL [Concomitant]
     Dosage: UNK, BID

REACTIONS (1)
  - HYPERGLYCAEMIA [None]
